FAERS Safety Report 7122783-2 (Version None)
Quarter: 2010Q4

REPORT INFORMATION
  Report Type: 
  Country: None (occurrence: None)
  Receive Date: 20101124
  Receipt Date: 20101110
  Transmission Date: 20110411
  Serious: Yes (Hospitalization)
  Sender: FDA-Public Use
  Company Number: JP-PFIZER INC-2010155666

PATIENT
  Age: 70 Year
  Sex: Male

DRUGS (4)
  1. AMIODARONE HCL [Suspect]
     Indication: VENTRICULAR EXTRASYSTOLES
     Dosage: 100 MG, 1X/DAY
     Route: 048
     Dates: start: 20080101
  2. CEFTRIAXONE [Concomitant]
  3. LEVOFLOXACIN [Concomitant]
  4. MEROPENEM [Concomitant]

REACTIONS (1)
  - PNEUMONIA [None]
